FAERS Safety Report 19007465 (Version 1)
Quarter: 2021Q1

REPORT INFORMATION
  Report Type: Spontaneous
  Country: US (occurrence: US)
  Receive Date: 20210315
  Receipt Date: 20210315
  Transmission Date: 20210420
  Serious: Yes (Other)
  Sender: FDA-Public Use
  Company Number: None

PATIENT
  Age: 14 Year
  Sex: Female
  Weight: 45 kg

DRUGS (1)
  1. GUANFACINE. [Suspect]
     Active Substance: GUANFACINE
     Indication: TOURETTE^S DISORDER
     Dates: start: 20210115, end: 20210311

REACTIONS (4)
  - Ankle fracture [None]
  - Dizziness [None]
  - Stress [None]
  - Fall [None]

NARRATIVE: CASE EVENT DATE: 20210221
